APPROVED DRUG PRODUCT: AZITHROMYCIN
Active Ingredient: AZITHROMYCIN
Strength: EQ 100MG BASE/5ML
Dosage Form/Route: FOR SUSPENSION;ORAL
Application: A065246 | Product #002 | TE Code: AB
Applicant: PLIVA INC
Approved: Jul 5, 2006 | RLD: No | RS: No | Type: RX